FAERS Safety Report 25327187 (Version 3)
Quarter: 2025Q2

REPORT INFORMATION
  Report Type: Report from Study
  Country: FR (occurrence: FR)
  Receive Date: 20250517
  Receipt Date: 20250621
  Transmission Date: 20250717
  Serious: Yes (Other)
  Sender: AMGEN
  Company Number: FR-AMGEN-FRANI2025093787

PATIENT

DRUGS (1)
  1. TEPROTUMUMAB [Suspect]
     Active Substance: TEPROTUMUMAB
     Indication: Product used for unknown indication
     Route: 040

REACTIONS (7)
  - Hyperthyroidism [Unknown]
  - Tri-iodothyronine increased [Unknown]
  - Thyroxine decreased [Unknown]
  - Blood alkaline phosphatase increased [Unknown]
  - Thyroid stimulating immunoglobulin [Unknown]
  - Unevaluable event [Unknown]
  - Ill-defined disorder [Unknown]

NARRATIVE: CASE EVENT DATE: 20241126
